FAERS Safety Report 23112716 (Version 8)
Quarter: 2024Q1

REPORT INFORMATION
  Report Type: Report from Study
  Country: PT (occurrence: PT)
  Receive Date: 20231027
  Receipt Date: 20240214
  Transmission Date: 20240410
  Serious: Yes (Other)
  Sender: FDA-Public Use
  Company Number: PT-ABBVIE-5462831

PATIENT
  Age: 74 Year
  Sex: Female

DRUGS (17)
  1. CARBIDOPA\LEVODOPA [Suspect]
     Active Substance: CARBIDOPA\LEVODOPA
     Indication: Parkinson^s disease
     Dosage: 20 MG + 5 MG, FREQUENCY TEXT: MOR:13.4(8.4+5)CC;MAIN:1.9CC/H;EXTRA:1CC
     Route: 050
     Dates: start: 20210721
  2. CARBIDOPA\LEVODOPA [Suspect]
     Active Substance: CARBIDOPA\LEVODOPA
     Dosage: 20 MG + 5 MG (GASTRIC), MORN:11.7CC;MAIN:4CC/H;EXTRA:2CC
     Route: 050
     Dates: start: 20231030, end: 20231129
  3. CARBIDOPA\LEVODOPA [Suspect]
     Active Substance: CARBIDOPA\LEVODOPA
     Dosage: 20 MG + 5 MG (GASTRIC), MORN:11.7CC;MAIN:4CC/H;EXTRA:2CC
     Route: 050
     Dates: start: 20230529, end: 202310
  4. CARBIDOPA\LEVODOPA [Suspect]
     Active Substance: CARBIDOPA\LEVODOPA
     Dosage: 20 MG + 5 MG (GASTRIC)?MORN:11.7CC;MAIN:4CC/H;EXTRA:2CC
     Route: 050
     Dates: start: 202310, end: 202310
  5. FOSFOMYCIN [Suspect]
     Active Substance: FOSFOMYCIN
     Indication: Urinary tract infection
     Dosage: FORM STRENGTH: 3000 MG
     Route: 065
     Dates: start: 2023, end: 2023
  6. XADAGO [Concomitant]
     Active Substance: SAFINAMIDE MESYLATE
     Indication: Product used for unknown indication
     Dosage: BEFORE DUODOPA?FORM STRENGTH: 50 MILLIGRAM
  7. QUETIAPINE [Concomitant]
     Active Substance: QUETIAPINE
     Indication: Product used for unknown indication
     Dosage: FORM STRENGTH: 100 MILLIGRAM?BEFORE DUODOPA
  8. Zepacla [Concomitant]
     Indication: Product used for unknown indication
     Dosage: FORM STRENGTH: 0.5 MILLIGRAM?START DATE TEXT: BEFORE DUODOPA
  9. AMANTADINE HYDROCHLORIDE [Concomitant]
     Active Substance: AMANTADINE HYDROCHLORIDE
     Indication: Product used for unknown indication
     Dosage: BEFORE DUODOPA?FORM STRENGTH: 100 MILLIGRAM
  10. BENSERAZIDE HYDROCHLORIDE\LEVODOPA [Concomitant]
     Active Substance: BENSERAZIDE HYDROCHLORIDE\LEVODOPA
     Indication: Product used for unknown indication
     Dosage: MADOPAR (BENSERAZIDE), FORM STRENGTH: 200 MILLIGRAM?BEFORE DUODOPA
  11. SERTRALINE [Concomitant]
     Active Substance: SERTRALINE HYDROCHLORIDE
     Indication: Product used for unknown indication
     Dosage: FORM STRENGTH: 100 MILLIGRAM?BEFORE DUODOPA
  12. CEFUROXIME [Suspect]
     Active Substance: CEFUROXIME
     Indication: Product used for unknown indication
     Dosage: STOP DATE 2023 FORM STRENGTH: 500 MILLIGRAM
     Route: 065
     Dates: start: 202311
  13. CEFIXIME [Suspect]
     Active Substance: CEFIXIME
     Indication: Product used for unknown indication
     Route: 065
  14. CLONAZEPAM [Concomitant]
     Active Substance: CLONAZEPAM
     Indication: Product used for unknown indication
     Dosage: FORM STRENGTH: 0.5 MG, START DATE TEXT: BEFORE DUODOPA
  15. NITROFURANTOIN [Suspect]
     Active Substance: NITROFURANTOIN
     Indication: Product used for unknown indication
     Route: 065
  16. AMOXICILLIN [Suspect]
     Active Substance: AMOXICILLIN
     Indication: Product used for unknown indication
     Route: 065
  17. CLAVULANIC ACID [Suspect]
     Active Substance: CLAVULANIC ACID
     Indication: Product used for unknown indication
     Route: 065

REACTIONS (13)
  - Escherichia test positive [Recovered/Resolved]
  - Disorganised speech [Recovered/Resolved]
  - White blood cells urine positive [Not Recovered/Not Resolved]
  - Urine odour abnormal [Recovered/Resolved]
  - Urinary tract infection [Not Recovered/Not Resolved]
  - Escherichia test positive [Not Recovered/Not Resolved]
  - Multiple drug hypersensitivity [Unknown]
  - Mobility decreased [Recovered/Resolved]
  - Urine odour abnormal [Recovered/Resolved]
  - Klebsiella infection [Recovered/Resolved]
  - Dysarthria [Recovered/Resolved]
  - Ocular hyperaemia [Recovered/Resolved]
  - Hallucination, visual [Recovered/Resolved]

NARRATIVE: CASE EVENT DATE: 20231001
